FAERS Safety Report 4549945-2 (Version None)
Quarter: 2005Q1

REPORT INFORMATION
  Report Type: 
  Country: None (occurrence: None)
  Receive Date: 20050112
  Receipt Date: 20050104
  Transmission Date: 20050727
  Serious: Yes (Other)
  Sender: FDA-Public Use
  Company Number: PHEH2005US00499

PATIENT
  Sex: Male

DRUGS (1)
  1. SERENTIL [Suspect]
     Dosage: 100 MG, UNK

REACTIONS (5)
  - AGITATION [None]
  - COMMUNICATION DISORDER [None]
  - OBSESSIVE-COMPULSIVE DISORDER [None]
  - PHYSICAL ASSAULT [None]
  - SOCIAL AVOIDANT BEHAVIOUR [None]
